FAERS Safety Report 18661356 (Version 1)
Quarter: 2020Q4

REPORT INFORMATION
  Report Type: Report from Study
  Country: US (occurrence: US)
  Receive Date: 20201224
  Receipt Date: 20201224
  Transmission Date: 20210114
  Serious: Yes (Death)
  Sender: FDA-Public Use
  Company Number: US-ROCHE-2738972

PATIENT
  Age: 80 Year
  Sex: Female
  Weight: 65.3 kg

DRUGS (3)
  1. TOCILIZUMAB. [Suspect]
     Active Substance: TOCILIZUMAB
     Indication: MALIGNANT MELANOMA
     Route: 042
     Dates: start: 20200923, end: 20201125
  2. NIVOLUMAB [Suspect]
     Active Substance: NIVOLUMAB
     Indication: MALIGNANT MELANOMA
     Route: 042
     Dates: start: 20200923, end: 20201125
  3. IPILIMUMAB [Concomitant]
     Active Substance: IPILIMUMAB
     Dates: start: 20200923, end: 20201120

REACTIONS (2)
  - Sepsis [Fatal]
  - COVID-19 [Fatal]

NARRATIVE: CASE EVENT DATE: 20201210
